FAERS Safety Report 14277106 (Version 1)
Quarter: 2017Q4

REPORT INFORMATION
  Report Type: Spontaneous
  Country: US (occurrence: US)
  Receive Date: 20171211
  Receipt Date: 20171211
  Transmission Date: 20180321
  Serious: Yes (Other)
  Sender: FDA-Public Use
  Company Number: US-OTSUKA-2017_014564

PATIENT
  Sex: Female

DRUGS (6)
  1. ABILIFY [Suspect]
     Active Substance: ARIPIPRAZOLE
     Indication: PRODUCT USED FOR UNKNOWN INDICATION
     Dosage: 2 MG, QD
     Route: 048
     Dates: start: 2017
  2. WELLBUTRIN [Suspect]
     Active Substance: BUPROPION HYDROCHLORIDE
     Indication: MAJOR DEPRESSION
     Dosage: UNK
     Route: 065
  3. DULOXETINE. [Suspect]
     Active Substance: DULOXETINE
     Indication: MAJOR DEPRESSION
     Dosage: UNK
     Route: 065
  4. DULOXETINE. [Suspect]
     Active Substance: DULOXETINE
     Indication: MAJOR DEPRESSION
     Route: 065
  5. ABILIFY [Suspect]
     Active Substance: ARIPIPRAZOLE
     Indication: MAJOR DEPRESSION
     Dosage: 15 MG, QD
     Route: 048
     Dates: start: 2012
  6. PROPRANOLOL [Concomitant]
     Active Substance: PROPRANOLOL HYDROCHLORIDE
     Indication: ESSENTIAL TREMOR
     Dosage: UNK
     Route: 065

REACTIONS (4)
  - Stress [Unknown]
  - Dementia Alzheimer^s type [Unknown]
  - Persistent depressive disorder [Unknown]
  - Overdose [Unknown]

NARRATIVE: CASE EVENT DATE: 2013
